FAERS Safety Report 4392617-8 (Version None)
Quarter: 2004Q3

REPORT INFORMATION
  Report Type: 
  Country: None (occurrence: None)
  Receive Date: 20040702
  Receipt Date: 20040622
  Transmission Date: 20050211
  Serious: Yes (Hospitalization)
  Sender: FDA-Public Use
  Company Number: 2004-00363FE

PATIENT
  Age: 53 Year
  Sex: Female

DRUGS (1)
  1. PENTASA [Suspect]
     Indication: LARGE INTESTINAL ULCER
     Dosage: 2250 MG
     Route: 048
     Dates: start: 20040414, end: 20040524

REACTIONS (2)
  - EOSINOPHIL COUNT INCREASED [None]
  - PNEUMONIA [None]
